FAERS Safety Report 8030442-7 (Version None)
Quarter: 2012Q1

REPORT INFORMATION
  Report Type: 
  Country: None (occurrence: None)
  Receive Date: 20120105
  Receipt Date: 20111221
  Transmission Date: 20120608
  Serious: Yes (Hospitalization)
  Sender: FDA-Public Use
  Company Number: TCI2011A06640

PATIENT
  Age: 47 Year
  Sex: Female

DRUGS (2)
  1. INSULIN HUMAN [Concomitant]
  2. ACTOS [Suspect]
     Indication: TYPE 2 DIABETES MELLITUS
     Dosage: ORAL
     Route: 048
     Dates: start: 20101102, end: 20111129

REACTIONS (2)
  - BLADDER CANCER [None]
  - PELVIC NEOPLASM [None]
